FAERS Safety Report 7245010-4 (Version None)
Quarter: 2011Q1

REPORT INFORMATION
  Report Type: 
  Country: None (occurrence: None)
  Receive Date: 20110126
  Receipt Date: 20110120
  Transmission Date: 20110831
  Serious: Yes (Other)
  Sender: FDA-Public Use
  Company Number: US-AMGEN-USASP2011003750

PATIENT
  Age: 56 Year
  Sex: Female

DRUGS (1)
  1. NEUPOGEN [Suspect]
     Indication: MULTIPLE MYELOMA

REACTIONS (2)
  - WHITE BLOOD CELL COUNT DECREASED [None]
  - TRANSPLANT [None]
